FAERS Safety Report 7563252-5 (Version None)
Quarter: 2011Q2

REPORT INFORMATION
  Report Type: 
  Country: None (occurrence: None)
  Receive Date: 20110615
  Receipt Date: 20110609
  Transmission Date: 20111010
  Serious: Yes (Hospitalization)
  Sender: FDA-Public Use
  Company Number: 2011SP024236

PATIENT
  Age: 43 Year
  Sex: Male

DRUGS (3)
  1. DESLORATADINE [Suspect]
     Indication: PRURITUS
     Dosage: 1 DF, QD, PO
     Route: 048
     Dates: start: 20110201, end: 20110401
  2. VOLTAREN [Concomitant]
  3. OMEPRAZOLE [Concomitant]

REACTIONS (6)
  - SOMNOLENCE [None]
  - FATIGUE [None]
  - PRURITUS [None]
  - DERMATITIS ATOPIC [None]
  - STRESS [None]
  - CONDITION AGGRAVATED [None]
